FAERS Safety Report 21645005 (Version 1)
Quarter: 2022Q4

REPORT INFORMATION
  Report Type: Spontaneous
  Country: NL (occurrence: NL)
  Receive Date: 20221125
  Receipt Date: 20221125
  Transmission Date: 20230112
  Serious: Yes (Disabling)
  Sender: FDA-Public Use
  Company Number: None

PATIENT
  Sex: Female
  Weight: 95 kg

DRUGS (1)
  1. INDAPAMIDE [Suspect]
     Active Substance: INDAPAMIDE
     Indication: Hypertension
     Dosage: STRENGTH AND DOSE: 2.5 MG, INDAPAMIDE DRAGEE 2.5MG / BRAND NAME NOT SPECIFIED
     Dates: start: 20200325, end: 20200403

REACTIONS (2)
  - Ankle fracture [Recovering/Resolving]
  - Loss of consciousness [Recovered/Resolved]
